FAERS Safety Report 19844884 (Version 2)
Quarter: 2021Q4

REPORT INFORMATION
  Report Type: Spontaneous
  Country: US (occurrence: US)
  Receive Date: 20210916
  Receipt Date: 20211014
  Transmission Date: 20220303
  Serious: No
  Sender: FDA-Public Use
  Company Number: US-INCYTE CORPORATION-2021IN008244

PATIENT

DRUGS (1)
  1. JAKAFI [Suspect]
     Active Substance: RUXOLITINIB
     Indication: Essential thrombocythaemia
     Dosage: 5 MILLIGRAM, BID
     Route: 048
     Dates: start: 202001

REACTIONS (10)
  - Pain [Unknown]
  - Decreased activity [Unknown]
  - Oral pain [Unknown]
  - Mouth ulceration [Unknown]
  - Oral mucosal erythema [Unknown]
  - Hypophagia [Unknown]
  - Fluid intake reduced [Unknown]
  - Wrong technique in product usage process [Unknown]
  - Off label use [Unknown]
  - Diarrhoea [Unknown]

NARRATIVE: CASE EVENT DATE: 20200101
